FAERS Safety Report 8593377-7 (Version None)
Quarter: 2012Q3

REPORT INFORMATION
  Report Type: 
  Country: None (occurrence: None)
  Receive Date: 20120814
  Receipt Date: 20120809
  Transmission Date: 20120928
  Serious: No
  Sender: FDA-Public Use
  Company Number: US-PFIZER INC-2012082339

PATIENT
  Age: 69 Year
  Sex: Female
  Weight: 77.098 kg

DRUGS (1)
  1. CHANTIX [Suspect]
     Indication: SMOKING CESSATION THERAPY
     Dosage: 1 MG, 2X/DAY
     Route: 048
     Dates: start: 20120331

REACTIONS (3)
  - INCORRECT DOSE ADMINISTERED [None]
  - VOMITING [None]
  - DRUG DISPENSING ERROR [None]
